FAERS Safety Report 21698411 (Version 5)
Quarter: 2023Q4

REPORT INFORMATION
  Report Type: Report from Study
  Country: CA (occurrence: CA)
  Receive Date: 20221208
  Receipt Date: 20231004
  Transmission Date: 20240110
  Serious: Yes (Death, Other)
  Sender: FDA-Public Use
  Company Number: CA-JNJFOC-20220620566

PATIENT
  Age: 94 Year
  Sex: Male

DRUGS (1)
  1. ZYTIGA [Suspect]
     Active Substance: ABIRATERONE ACETATE
     Indication: Prostate cancer metastatic
     Route: 048

REACTIONS (5)
  - Death [Fatal]
  - Thrombosis [Not Recovered/Not Resolved]
  - Dyspnoea [Unknown]
  - Oedema peripheral [Not Recovered/Not Resolved]
  - Joint swelling [Not Recovered/Not Resolved]
